FAERS Safety Report 13447184 (Version 1)
Quarter: 2017Q2

REPORT INFORMATION
  Report Type: Spontaneous
  Country: US (occurrence: US)
  Receive Date: 20170416
  Receipt Date: 20170416
  Transmission Date: 20170830
  Serious: No
  Sender: FDA-Public Use
  Company Number: None

PATIENT
  Age: 32 Year
  Sex: Male
  Weight: 96.75 kg

DRUGS (9)
  1. BUPROPION HCL XL 150 MG [Suspect]
     Active Substance: BUPROPION HYDROCHLORIDE
     Indication: DEPRESSION
     Dosage: ?          QUANTITY:1 CAPSULE(S);?
     Route: 048
     Dates: start: 20170412, end: 20170415
  2. BUPROPION. [Concomitant]
     Active Substance: BUPROPION
  3. RANITIDINE. [Concomitant]
     Active Substance: RANITIDINE
  4. VITAMIN D [Concomitant]
     Active Substance: CHOLECALCIFEROL
  5. OMEGA 3 FISH OIL [Concomitant]
     Active Substance: FISH OIL\OMEGA-3 FATTY ACIDS
  6. FLUOXETINE [Concomitant]
     Active Substance: FLUOXETINE HYDROCHLORIDE
  7. LORATADINE. [Concomitant]
     Active Substance: LORATADINE
  8. MULTIVITAMIN [Concomitant]
     Active Substance: VITAMINS
  9. PROBIOTIC [Concomitant]
     Active Substance: PROBIOTICS NOS

REACTIONS (6)
  - Fatigue [None]
  - Withdrawal syndrome [None]
  - Paraesthesia [None]
  - Product substitution issue [None]
  - Asthenia [None]
  - Panic attack [None]

NARRATIVE: CASE EVENT DATE: 20170414
